FAERS Safety Report 7717822-1 (Version None)
Quarter: 2011Q3

REPORT INFORMATION
  Report Type: 
  Country: None (occurrence: None)
  Receive Date: 20110830
  Receipt Date: 20110825
  Transmission Date: 20111222
  Serious: Yes (Hospitalization, Other)
  Sender: FDA-Public Use
  Company Number: JP-PFIZER INC-2010179215

PATIENT
  Age: 63 Year
  Sex: Female
  Weight: 37.7 kg

DRUGS (2)
  1. LYRICA [Suspect]
     Indication: DIABETIC NEUROPATHY
     Dosage: 50 MG, DAILY
     Route: 048
     Dates: start: 20101022, end: 20101024
  2. LYRICA [Suspect]
     Indication: NEURALGIA
     Dosage: 75 MG, 2X/DAY

REACTIONS (8)
  - HYPERTENSION [None]
  - HEART RATE INCREASED [None]
  - DRUG LEVEL INCREASED [None]
  - FEELING ABNORMAL [None]
  - SOMNOLENCE [None]
  - DIZZINESS [None]
  - INCORRECT DOSE ADMINISTERED [None]
  - ASTHENIA [None]
